FAERS Safety Report 6406410-5 (Version None)
Quarter: 2009Q4

REPORT INFORMATION
  Report Type: 
  Country: None (occurrence: None)
  Receive Date: 20091014
  Receipt Date: 20090925
  Transmission Date: 20100525
  Serious: Yes (Other)
  Sender: FDA-Public Use
  Company Number: JPI-P-008752

PATIENT
  Age: 54 Year
  Sex: Female

DRUGS (9)
  1. XYREM [Suspect]
     Indication: NARCOLEPSY
     Dosage: SEE IMAGE
     Route: 048
     Dates: start: 20090511, end: 20090901
  2. XYREM [Suspect]
     Indication: NARCOLEPSY
     Dosage: SEE IMAGE
     Route: 048
     Dates: start: 20090901, end: 20090901
  3. XYREM [Suspect]
     Indication: NARCOLEPSY
     Dosage: SEE IMAGE
     Route: 048
     Dates: start: 20090901
  4. AMANTADINE (100 MILLIGRAM TABLETS) [Concomitant]
  5. OMEGA 3 AND FLAX SEED OIL (TABLETS) [Concomitant]
  6. GLUCOSAMINE AND CHONDROITIN (CAPSULES) [Concomitant]
  7. CALCIUM WITH VITAMIN D (TABLETS) [Concomitant]
  8. MULTIVITAMIN WITH IRON (TABLETS) [Concomitant]
  9. ASPIRIN [Concomitant]

REACTIONS (3)
  - ALOPECIA [None]
  - CATARACT [None]
  - WEIGHT DECREASED [None]
